FAERS Safety Report 4717704-3 (Version None)
Quarter: 2005Q3

REPORT INFORMATION
  Report Type: 
  Country: None (occurrence: None)
  Receive Date: 20050715
  Receipt Date: 20050706
  Transmission Date: 20060218
  Serious: Yes (Other)
  Sender: FDA-Public Use
  Company Number: HQWYE045808JUL05

PATIENT
  Sex: Female

DRUGS (3)
  1. PREMPRO [Suspect]
     Dosage: ORAL
     Route: 048
     Dates: start: 19950101, end: 20010201
  2. PREMARIN [Suspect]
     Dates: start: 19900101, end: 19950101
  3. PROVERA [Suspect]

REACTIONS (4)
  - BREAST CANCER METASTATIC [None]
  - METASTASES TO LIVER [None]
  - OESTROGEN RECEPTOR ASSAY POSITIVE [None]
  - PROGESTERONE RECEPTOR ASSAY POSITIVE [None]
